FAERS Safety Report 5590405-8 (Version None)
Quarter: 2008Q1

REPORT INFORMATION
  Report Type: 
  Country: None (occurrence: None)
  Receive Date: 20080114
  Receipt Date: 20071218
  Transmission Date: 20080703
  Serious: No
  Sender: FDA-Public Use
  Company Number: US-BOEHRINGER INGELHEIM PHARMACEUTICALS, INC.-2007-BP-26601BP

PATIENT
  Sex: Female

DRUGS (1)
  1. SPIRIVA [Suspect]
     Route: 055

REACTIONS (2)
  - COUGH [None]
  - PNEUMONIA [None]
